FAERS Safety Report 10265775 (Version 2)
Quarter: 2014Q3

REPORT INFORMATION
  Report Type: Spontaneous
  Country: US (occurrence: US)
  Receive Date: 20140627
  Receipt Date: 20140919
  Transmission Date: 20150326
  Serious: Yes (Other)
  Sender: FDA-Public Use
  Company Number: US-GLAXOSMITHKLINE-A1076665A

PATIENT
  Age: 67 Year
  Sex: Female

DRUGS (11)
  1. SULINDAC. [Concomitant]
     Active Substance: SULINDAC
  2. TRIAMTERENE. [Concomitant]
     Active Substance: TRIAMTERENE
  3. ADVAIR HFA [Suspect]
     Active Substance: FLUTICASONE PROPIONATE\SALMETEROL XINAFOATE
     Indication: ASTHMA
     Dosage: 1PUFF TWICE PER DAY
     Route: 055
     Dates: start: 20120118
  4. LORATADINE. [Concomitant]
     Active Substance: LORATADINE
  5. ESTRADIOL. [Concomitant]
     Active Substance: ESTRADIOL
  6. PROAIR HFA [Concomitant]
     Active Substance: ALBUTEROL SULFATE
  7. ATORVASTATIN [Concomitant]
     Active Substance: ATORVASTATIN
  8. CLORAZEPATE DIPOTASSIUM. [Concomitant]
     Active Substance: CLORAZEPATE DIPOTASSIUM
  9. FLUOXETINE [Concomitant]
     Active Substance: FLUOXETINE\FLUOXETINE HYDROCHLORIDE
  10. ZOLPIDEM TARTRATE. [Concomitant]
     Active Substance: ZOLPIDEM TARTRATE
  11. CYCLOBENZAPRINE [Concomitant]
     Active Substance: CYCLOBENZAPRINE

REACTIONS (5)
  - Pneumonia [Recovered/Resolved]
  - Productive cough [Recovered/Resolved]
  - Nasopharyngitis [Not Recovered/Not Resolved]
  - Sneezing [Not Recovered/Not Resolved]
  - Sinus disorder [Recovered/Resolved]

NARRATIVE: CASE EVENT DATE: 201405
